FAERS Safety Report 22828189 (Version 2)
Quarter: 2023Q4

REPORT INFORMATION
  Report Type: Report from Study
  Country: US (occurrence: US)
  Receive Date: 20230816
  Receipt Date: 20231026
  Transmission Date: 20240109
  Serious: No
  Sender: FDA-Public Use
  Company Number: US-IDORSIA-006585-2023-US

PATIENT
  Sex: Female

DRUGS (2)
  1. QUVIVIQ [Suspect]
     Active Substance: DARIDOREXANT
     Indication: Insomnia
     Dosage: 25 MG, QD
     Route: 048
  2. Doxicycline [Concomitant]
     Indication: Hordeolum

REACTIONS (2)
  - Drug ineffective [Not Recovered/Not Resolved]
  - Inappropriate schedule of product administration [Unknown]
